FAERS Safety Report 14544989 (Version 1)
Quarter: 2018Q1

REPORT INFORMATION
  Report Type: Spontaneous
  Country: US (occurrence: US)
  Receive Date: 20180216
  Receipt Date: 20180216
  Transmission Date: 20180509
  Serious: No
  Sender: FDA-Public Use
  Company Number: None

PATIENT
  Age: 15 Year
  Sex: Female
  Weight: 51.75 kg

DRUGS (3)
  1. MINOCYCLINE [Suspect]
     Active Substance: MINOCYCLINE\MINOCYCLINE HYDROCHLORIDE
     Indication: ACNE
     Dosage: ?          QUANTITY:1 CAPSULE(S);?
     Route: 048
  2. ZOFRAN [Concomitant]
     Active Substance: ONDANSETRON HYDROCHLORIDE
  3. IBUPROEN [Concomitant]

REACTIONS (3)
  - Tendonitis [None]
  - Tendon pain [None]
  - Tendon rupture [None]

NARRATIVE: CASE EVENT DATE: 20180115
